FAERS Safety Report 18326858 (Version 5)
Quarter: 2021Q1

REPORT INFORMATION
  Report Type: Spontaneous
  Country: CA (occurrence: CA)
  Receive Date: 20200930
  Receipt Date: 20210304
  Transmission Date: 20210419
  Serious: Yes (Hospitalization, Other)
  Sender: FDA-Public Use
  Company Number: CA-CELLTRION INC.-2020CA025172

PATIENT

DRUGS (7)
  1. INFLECTRA [Suspect]
     Active Substance: INFLIXIMAB-DYYB
     Dosage: 900 MG FREQUENCY: 4 WEEKS
     Route: 042
     Dates: start: 20200824
  2. INFLECTRA [Suspect]
     Active Substance: INFLIXIMAB-DYYB
     Dosage: 900 MG FREQUENCY: 4 WEEKS
     Route: 042
     Dates: start: 20210222
  3. INFLECTRA [Suspect]
     Active Substance: INFLIXIMAB-DYYB
     Indication: CROHN^S DISEASE
     Dosage: 900 MG EVERY 4 WEEKS
     Route: 042
     Dates: start: 20200629
  4. REMICADE [Suspect]
     Active Substance: INFLIXIMAB
     Dosage: UNK
     Dates: start: 20201019
  5. INFLECTRA [Suspect]
     Active Substance: INFLIXIMAB-DYYB
     Dosage: 900 MG FREQUENCY: 4 WEEKS
     Route: 042
     Dates: start: 20210125
  6. INFLECTRA [Suspect]
     Active Substance: INFLIXIMAB-DYYB
     Dosage: 900 MG FREQUENCY: 4 WEEKS
     Route: 042
     Dates: start: 20210125
  7. INFLECTRA [Suspect]
     Active Substance: INFLIXIMAB-DYYB
     Dosage: 900 MG FREQUENCY: 4 WEEKS
     Route: 042
     Dates: start: 20210222

REACTIONS (9)
  - Wrong product administered [Unknown]
  - Product dispensing error [Unknown]
  - Abdominal pain lower [Recovering/Resolving]
  - Intentional product use issue [Unknown]
  - Off label use [Unknown]
  - Wound infection [Recovered/Resolved]
  - Limb injury [Recovered/Resolved]
  - Intestinal obstruction [Recovering/Resolving]
  - Drug level below therapeutic [Unknown]

NARRATIVE: CASE EVENT DATE: 20201019
